FAERS Safety Report 19590081 (Version 3)
Quarter: 2022Q1

REPORT INFORMATION
  Report Type: Report from Study
  Country: US (occurrence: US)
  Receive Date: 20210721
  Receipt Date: 20220301
  Transmission Date: 20220423
  Serious: Yes (Hospitalization, Other)
  Sender: FDA-Public Use
  Company Number: US-AMGEN-USASP2021109834

PATIENT
  Sex: Female

DRUGS (4)
  1. OTEZLA [Suspect]
     Active Substance: APREMILAST
     Indication: Product used for unknown indication
     Dosage: UNK
     Route: 065
     Dates: start: 2016
  2. HUMIRA [Suspect]
     Active Substance: ADALIMUMAB
     Indication: Psoriasis
     Dosage: UNK (CITRATE FREE)
     Route: 058
  3. PFIZER-BIONTECH COVID-19 VACCINE [Concomitant]
     Active Substance: TOZINAMERAN
     Dosage: 1 IN 1 ONCE
     Dates: start: 202102, end: 202102
  4. CELECOXIB [Concomitant]
     Active Substance: CELECOXIB

REACTIONS (12)
  - Colon cancer [Recovering/Resolving]
  - Psoriatic arthropathy [Unknown]
  - Spinal compression fracture [Unknown]
  - Colitis ulcerative [Unknown]
  - Colitis [Unknown]
  - Rash pruritic [Unknown]
  - Rotator cuff syndrome [Unknown]
  - Nausea [Unknown]
  - Diarrhoea [Unknown]
  - Abdominal discomfort [Unknown]
  - Blood cholesterol increased [Unknown]
  - Spondylitis [Unknown]
